FAERS Safety Report 6686685-8 (Version None)
Quarter: 2010Q2

REPORT INFORMATION
  Report Type: 
  Country: None (occurrence: None)
  Receive Date: 20100415
  Receipt Date: 20100401
  Transmission Date: 20101027
  Serious: Yes (Hospitalization)
  Sender: FDA-Public Use
  Company Number: 2009AC000452

PATIENT
  Age: 43 Year
  Sex: Male
  Weight: 90.7194 kg

DRUGS (51)
  1. DIGOXIN [Suspect]
     Dosage: 0.125 MG;QD;PO
     Route: 048
     Dates: start: 20030101, end: 20080101
  2. CLONAZEPAM [Concomitant]
  3. ASPIRIN [Concomitant]
  4. PREVACID [Concomitant]
  5. PERCOCET [Concomitant]
  6. ALBUTEROL [Concomitant]
  7. COREG [Concomitant]
  8. EFFEXOR [Concomitant]
  9. REQUIP [Concomitant]
  10. VALIUM [Concomitant]
  11. AVALIDE [Concomitant]
  12. WELLBUTRIN [Concomitant]
  13. AVAPRO [Concomitant]
  14. KLONOPIN [Concomitant]
  15. FLEXERIL [Concomitant]
  16. TORADOL [Concomitant]
  17. DILAUDID [Concomitant]
  18. COMPAZINE [Concomitant]
  19. CELEBREX [Concomitant]
  20. GABAPENTIN [Concomitant]
  21. DIOVAN [Concomitant]
  22. PRILOSEC [Concomitant]
  23. AVELOX [Concomitant]
  24. BUPROPION [Concomitant]
  25. OXYCODONE HCL [Concomitant]
  26. IBUPROFEN [Concomitant]
  27. SULFAMETHOXAZOLE [Concomitant]
  28. ATIVAN [Concomitant]
  29. ALPRAZOLAM [Concomitant]
  30. SERZONE [Concomitant]
  31. ZITHROMYCIN [Concomitant]
  32. OXYCODONE HCL AND ACETAMINOPHEN [Concomitant]
  33. AMBIEN [Concomitant]
  34. ARTHROTEC [Concomitant]
  35. PREDNISONE [Concomitant]
  36. AMPICILLIN [Concomitant]
  37. HYDROCODONE BITARTRATE [Concomitant]
  38. GUAIFENSEN [Concomitant]
  39. AMOXICILLIN [Concomitant]
  40. CEFUROXIME [Concomitant]
  41. AXETIL [Concomitant]
  42. FLONASE [Concomitant]
  43. LISINOPRIL [Concomitant]
  44. NITROGLYCERIN [Concomitant]
  45. LOVENOX [Concomitant]
  46. LIDODERM [Concomitant]
  47. CODEINE SULFATE [Concomitant]
  48. AVODART [Concomitant]
  49. FLUTICASONE PROPIONATE [Concomitant]
  50. SIMVASTATIN [Concomitant]
  51. CYMBALTA [Concomitant]

REACTIONS (38)
  - ABDOMINAL DISCOMFORT [None]
  - ACTIVITIES OF DAILY LIVING IMPAIRED [None]
  - AGORAPHOBIA [None]
  - ASTHENIA [None]
  - AVULSION FRACTURE [None]
  - BACK PAIN [None]
  - BLOOD UREA INCREASED [None]
  - CHEST PAIN [None]
  - COLONIC POLYP [None]
  - DEPRESSION [None]
  - DYSPNOEA EXERTIONAL [None]
  - FALL [None]
  - FATIGUE [None]
  - GAIT DISTURBANCE [None]
  - HYPERVENTILATION [None]
  - HYPOAESTHESIA [None]
  - INJURY [None]
  - INSOMNIA [None]
  - INTERVERTEBRAL DISC DEGENERATION [None]
  - MARITAL PROBLEM [None]
  - MIDDLE INSOMNIA [None]
  - MITRAL VALVE INCOMPETENCE [None]
  - MUSCLE SPASMS [None]
  - NAUSEA [None]
  - PANIC DISORDER [None]
  - PARAESTHESIA [None]
  - PRESYNCOPE [None]
  - ROTATOR CUFF SYNDROME [None]
  - SLEEP DISORDER [None]
  - SNORING [None]
  - SOCIAL PROBLEM [None]
  - SOMNOLENCE [None]
  - STRESS [None]
  - TACHYCARDIA [None]
  - TREMOR [None]
  - TRICUSPID VALVE INCOMPETENCE [None]
  - WEIGHT DECREASED [None]
  - WEIGHT INCREASED [None]
